FAERS Safety Report 23444403 (Version 3)
Quarter: 2024Q1

REPORT INFORMATION
  Report Type: Spontaneous
  Country: CN (occurrence: CN)
  Receive Date: 20240125
  Receipt Date: 20240321
  Transmission Date: 20240410
  Serious: Yes (Hospitalization)
  Sender: FDA-Public Use
  Company Number: CN-ELI_LILLY_AND_COMPANY-CN202401009304

PATIENT
  Age: 67 Year
  Sex: Female
  Weight: 67.5 kg

DRUGS (2)
  1. HUMULIN 70/30 [Suspect]
     Active Substance: INSULIN HUMAN
     Indication: Diabetes mellitus
     Dosage: 18 U, BID
     Route: 058
     Dates: start: 2013
  2. HUMULIN 70/30 [Suspect]
     Active Substance: INSULIN HUMAN
     Dosage: 24 U, TID
     Route: 058
     Dates: start: 2013

REACTIONS (5)
  - Blood glucose increased [Recovering/Resolving]
  - Macular oedema [Recovering/Resolving]
  - Glycosylated haemoglobin increased [Unknown]
  - Glucose urine present [Unknown]
  - Insulin resistance [Recovering/Resolving]

NARRATIVE: CASE EVENT DATE: 20230401
